APPROVED DRUG PRODUCT: DONEPEZIL HYDROCHLORIDE
Active Ingredient: DONEPEZIL HYDROCHLORIDE
Strength: 10MG
Dosage Form/Route: TABLET;ORAL
Application: A090100 | Product #002 | TE Code: AB
Applicant: ZYDUS LIFESCIENCES LTD
Approved: Oct 24, 2012 | RLD: No | RS: No | Type: RX